FAERS Safety Report 15853848 (Version 3)
Quarter: 2019Q2

REPORT INFORMATION
  Report Type: Spontaneous
  Country: US (occurrence: US)
  Receive Date: 20190122
  Receipt Date: 20190612
  Transmission Date: 20190711
  Serious: No
  Sender: FDA-Public Use
  Company Number: US-PFIZER INC-2018193289

PATIENT
  Age: 12 Year
  Sex: Female

DRUGS (2)
  1. GENOTROPIN [Suspect]
     Active Substance: SOMATROPIN
     Indication: BODY HEIGHT BELOW NORMAL
     Dosage: 1.8 MG, DAILY
     Dates: start: 20180406
  2. GENOTROPIN [Suspect]
     Active Substance: SOMATROPIN
     Indication: TOOTH DEVELOPMENT DISORDER
     Dosage: 1.8 MG, DAILY
     Dates: start: 20180507

REACTIONS (5)
  - Intraocular pressure increased [Unknown]
  - Weight increased [Unknown]
  - Incorrect dose administered [Unknown]
  - Vitamin D decreased [Unknown]
  - Wrong technique in device usage process [Unknown]
